FAERS Safety Report 7670275 (Version 6)
Quarter: 2012Q4

REPORT INFORMATION
  Report Type: 
  Country: US (occurrence: US)
  Receive Date: 20101116
  Receipt Date: 20120907
  Transmission Date: 20130627
  Serious: Yes (Hospitalization, Other)
  Sender: FDA-Public Use
  Company Number: US-ELI_LILLY_AND_COMPANY-US201011002216

PATIENT
  Age: 50 Year
  Sex: Male
  Weight: 106 kg

DRUGS (9)
  1. EFFIENT [Suspect]
     Indication: STENT PLACEMENT
     Dosage: 10 mg, daily (1/D)
     Route: 048
     Dates: start: 20100125, end: 20101103
  2. ASPIRIN [Concomitant]
     Dosage: 325 mg, unknown
     Route: 065
  3. ASPIRIN [Concomitant]
     Dosage: 81 mg, unknown
  4. COZAAR [Concomitant]
     Indication: BLOOD PRESSURE
     Dosage: 50 mg, qd
     Route: 065
  5. METOPROLOL [Concomitant]
     Dosage: 25 mg, 2/D
     Route: 065
  6. METOPROLOL [Concomitant]
     Dosage: 50 mg, bid
  7. AMBIEN [Concomitant]
     Dosage: UNK, each evening
  8. PLAVIX [Concomitant]
     Dosage: UNK, qd
  9. NIASPAN [Concomitant]
     Dosage: UNK, unknown
     Route: 065

REACTIONS (17)
  - Abdominal wall haematoma [Recovering/Resolving]
  - Chest injury [Unknown]
  - Muscle rupture [Unknown]
  - Coagulopathy [Unknown]
  - Dyspnoea [Unknown]
  - Tumour compression [Unknown]
  - Haemorrhage [Unknown]
  - Neoplasm [Unknown]
  - Sinusitis [Unknown]
  - Rib fracture [Unknown]
  - Waist circumference increased [Unknown]
  - Dysuria [Unknown]
  - Fear [Unknown]
  - Anger [Unknown]
  - Pain [Unknown]
  - Myalgia [Unknown]
  - Muscle spasms [Unknown]
